FAERS Safety Report 12020225 (Version 2)
Quarter: 2017Q3

REPORT INFORMATION
  Report Type: Spontaneous
  Country: US (occurrence: US)
  Receive Date: 20160206
  Receipt Date: 20170830
  Transmission Date: 20171127
  Serious: Yes (Other)
  Sender: FDA-Public Use
  Company Number: US-SUN PHARMACEUTICAL INDUSTRIES LTD-2016US-111012

PATIENT
  Age: 66 Year
  Sex: Female
  Weight: 66 kg

DRUGS (10)
  1. FENTANYL. [Suspect]
     Active Substance: FENTANYL
     Indication: PRODUCT USED FOR UNKNOWN INDICATION
     Dosage: UNK
     Route: 008
  2. ADRENALINE [Suspect]
     Active Substance: EPINEPHRINE
     Dosage: 5 CC
     Route: 008
  3. ADRENALINE [Suspect]
     Active Substance: EPINEPHRINE
     Indication: EPIDURAL ANAESTHESIA
     Dosage: 3 CC
     Route: 008
  4. ADRENALINE [Suspect]
     Active Substance: EPINEPHRINE
     Indication: EPIDURAL ANAESTHESIA
     Dosage: 5 CC
     Route: 008
  5. MIDAZOLAM [Suspect]
     Active Substance: MIDAZOLAM HYDROCHLORIDE
     Indication: PRODUCT USED FOR UNKNOWN INDICATION
     Dosage: UNK
     Route: 008
  6. ADRENALINE [Suspect]
     Active Substance: EPINEPHRINE
     Dosage: 5 CC
     Route: 008
  7. LIDOCAINE. [Suspect]
     Active Substance: LIDOCAINE
     Indication: PRODUCT USED FOR UNKNOWN INDICATION
     Dosage: 3 CC
     Route: 008
  8. LIDOCAINE. [Suspect]
     Active Substance: LIDOCAINE
     Indication: EPIDURAL ANAESTHESIA
     Dosage: 5 CC
     Route: 008
  9. LIDOCAINE. [Suspect]
     Active Substance: LIDOCAINE
     Dosage: 5 CC
     Route: 008
  10. LIDOCAINE. [Suspect]
     Active Substance: LIDOCAINE
     Dosage: 5 CC
     Route: 008

REACTIONS (4)
  - Heart rate increased [Recovered/Resolved]
  - Blood pressure increased [Recovered/Resolved]
  - Anaesthetic complication [Recovered/Resolved]
  - Neurotoxicity [Recovered/Resolved]
